FAERS Safety Report 19132753 (Version 1)
Quarter: 2021Q2

REPORT INFORMATION
  Report Type: Report from Study
  Country: FR (occurrence: FR)
  Receive Date: 20210414
  Receipt Date: 20210414
  Transmission Date: 20210717
  Serious: Yes (Death, Hospitalization, Other)
  Sender: FDA-Public Use
  Company Number: FR-BRISTOL-MYERS SQUIBB COMPANY-BMS-2021-033796

PATIENT
  Age: 54 Year
  Sex: Male

DRUGS (1)
  1. NIVOLUMAB [Suspect]
     Active Substance: NIVOLUMAB
     Indication: METASTATIC RENAL CELL CARCINOMA
     Dosage: 3 MILLIGRAM/KILOGRAM, Q2WK
     Route: 042
     Dates: start: 20180924

REACTIONS (6)
  - Pneumonia [Unknown]
  - Pleural effusion [Unknown]
  - Respiratory distress [Unknown]
  - Intentional product use issue [Unknown]
  - Hyperthermia [Recovered/Resolved]
  - Pancytopenia [Fatal]

NARRATIVE: CASE EVENT DATE: 20181105
